FAERS Safety Report 4349092-9 (Version None)
Quarter: 2004Q2

REPORT INFORMATION
  Report Type: 
  Country: None (occurrence: None)
  Receive Date: 20040423
  Receipt Date: 20040414
  Transmission Date: 20050107
  Serious: Yes (Death, Life-Threatening, Hospitalization)
  Sender: FDA-Public Use
  Company Number: 04P-144-0254746-00

PATIENT
  Age: 51 Year
  Sex: Male

DRUGS (8)
  1. KALETRA [Suspect]
     Indication: HIV INFECTION
     Dosage: 3 CAPSULE, 2 IN 1 D, PER ORAL
     Route: 048
     Dates: start: 20040103, end: 20040228
  2. INSULIN INJECTION, ISOPHANE [Concomitant]
  3. OMEPRAZOLE [Concomitant]
  4. ASPIRIN [Concomitant]
  5. FLUCONAZOLE [Concomitant]
  6. SEPTRIM [Concomitant]
  7. DIDANOSINE [Concomitant]
  8. STAVUDINE [Concomitant]

REACTIONS (9)
  - CANDIDIASIS [None]
  - CATHETER RELATED COMPLICATION [None]
  - COMA [None]
  - DEMENTIA [None]
  - NERVOUS SYSTEM DISORDER [None]
  - NERVOUSNESS [None]
  - PROCEDURAL COMPLICATION [None]
  - PROGRESSIVE MULTIFOCAL LEUKOENCEPHALOPATHY [None]
  - TERMINAL STATE [None]
